FAERS Safety Report 6683994-3 (Version None)
Quarter: 2010Q2

REPORT INFORMATION
  Report Type: 
  Country: None (occurrence: None)
  Receive Date: 20100416
  Receipt Date: 20100412
  Transmission Date: 20101027
  Serious: Yes (Death)
  Sender: FDA-Public Use
  Company Number: MX-ASTRAZENECA-2010SE16367

PATIENT
  Age: 63 Year
  Sex: Male

DRUGS (4)
  1. SEROQUEL [Suspect]
     Indication: SCHIZOPHRENIA, PARANOID TYPE
     Route: 048
     Dates: start: 20100201, end: 20100301
  2. HALDOL [Suspect]
     Indication: SCHIZOPHRENIA, PARANOID TYPE
     Dosage: ADMINISTTERED ONLY ON WEEKENDS
     Route: 030
     Dates: start: 20100201, end: 20100301
  3. CLOZAPINE [Suspect]
     Indication: SCHIZOPHRENIA, PARANOID TYPE
     Route: 048
     Dates: end: 20100301
  4. CLONAZEPAM [Suspect]
     Indication: SCHIZOPHRENIA, PARANOID TYPE
     Route: 048
     Dates: end: 20100301

REACTIONS (4)
  - HEPATIC ENCEPHALOPATHY [None]
  - HYPOTENSION [None]
  - HYPOTHERMIA [None]
  - PNEUMONIA [None]
